FAERS Safety Report 13468338 (Version 1)
Quarter: 2017Q2

REPORT INFORMATION
  Report Type: Spontaneous
  Country: FR (occurrence: FR)
  Receive Date: 20170421
  Receipt Date: 20170421
  Transmission Date: 20170830
  Serious: Yes (Hospitalization, Other)
  Sender: FDA-Public Use
  Company Number: FR-INDIVIOR LIMITED-INDV-100536-2017

PATIENT
  Age: 25 Year
  Sex: Female

DRUGS (12)
  1. COCAINE [Suspect]
     Active Substance: COCAINE
     Indication: PRODUCT USED FOR UNKNOWN INDICATION
     Dosage: UNKNOWN
     Route: 065
  2. LARGACTIL                          /00011901/ [Suspect]
     Active Substance: CHLORPROMAZINE
     Indication: PRODUCT USED FOR UNKNOWN INDICATION
     Dosage: 100 MG, 1 WHEN GOING TO SLEEP
     Route: 048
  3. HALDOL [Suspect]
     Active Substance: HALOPERIDOL
     Dosage: 60 MG, UNK
     Route: 048
     Dates: start: 20170109
  4. SUBUTEX [Suspect]
     Active Substance: BUPRENORPHINE HYDROCHLORIDE
     Indication: PRODUCT USED FOR UNKNOWN INDICATION
     Dosage: 8 MG, BID
     Route: 065
  5. SERESTA [Suspect]
     Active Substance: OXAZEPAM
     Indication: PRODUCT USED FOR UNKNOWN INDICATION
     Dosage: 50 MG: 1 AT NOON AND 2 WHEN GOING TO SLEEP
     Route: 048
  6. HALDOL [Suspect]
     Active Substance: HALOPERIDOL
     Indication: PRODUCT USED FOR UNKNOWN INDICATION
     Dosage: 5 MG: 1 AT NOON AND 2 WHEN GOING TO SLEEP
     Route: 048
  7. CANNABIS [Suspect]
     Active Substance: CANNABIS SATIVA SUBSP. INDICA TOP
     Indication: PRODUCT USED FOR UNKNOWN INDICATION
     Dosage: UNKNOWN
     Route: 065
  8. SEROPLEX [Suspect]
     Active Substance: ESCITALOPRAM OXALATE
     Indication: PRODUCT USED FOR UNKNOWN INDICATION
     Dosage: 15 MG: 1 WHEN WAKING UP
     Route: 048
  9. SERESTA [Suspect]
     Active Substance: OXAZEPAM
     Dosage: 600 MG, UNK
     Route: 048
     Dates: start: 20170109
  10. SEROPLEX [Suspect]
     Active Substance: ESCITALOPRAM OXALATE
     Dosage: 60 MG, UNK
     Route: 048
     Dates: start: 20170109
  11. LARGACTIL                          /00011901/ [Suspect]
     Active Substance: CHLORPROMAZINE
     Dosage: 400 MG, UNK
     Route: 048
     Dates: start: 20170109
  12. PARKINES LP [Concomitant]
     Indication: PRODUCT USED FOR UNKNOWN INDICATION
     Dosage: 5 MG: 2 WHEN WAKING UP
     Route: 065

REACTIONS (6)
  - Suicide attempt [Recovered/Resolved]
  - Drug use disorder [Unknown]
  - Toxicity to various agents [Recovered/Resolved]
  - Substance abuser [Unknown]
  - Coma [Recovered/Resolved]
  - Product use issue [Unknown]

NARRATIVE: CASE EVENT DATE: 20170109
